FAERS Safety Report 9691298 (Version 1)
Quarter: 2013Q4

REPORT INFORMATION
  Report Type: Spontaneous
  Country: US (occurrence: US)
  Receive Date: 20131115
  Receipt Date: 20131115
  Transmission Date: 20140711
  Serious: Yes (Other)
  Sender: FDA-Public Use
  Company Number: US-BAYER-2013-139493

PATIENT
  Age: 25 Year
  Sex: Female
  Weight: 78 kg

DRUGS (5)
  1. YAZ [Suspect]
  2. SYNTHROID [Concomitant]
     Dosage: 25 ?G, UNK
  3. CLONAZEPAM [Concomitant]
     Dosage: 0.5 MG, UNK
  4. ZANTAC [Concomitant]
     Dosage: 150 MG, UNK
  5. ATIVAN [Concomitant]

REACTIONS (1)
  - Cholecystitis chronic [None]
